FAERS Safety Report 13938550 (Version 1)
Quarter: 2017Q3

REPORT INFORMATION
  Report Type: Spontaneous
  Country: US (occurrence: US)
  Receive Date: 20170905
  Receipt Date: 20170905
  Transmission Date: 20171127
  Serious: Yes (Disabling)
  Sender: FDA-Public Use
  Company Number: None

PATIENT
  Age: 17 Year
  Sex: Male
  Weight: 63.9 kg

DRUGS (5)
  1. GINGKO BILOBA [Concomitant]
     Active Substance: GINKGO
  2. ISOTRETENOIN [Suspect]
     Active Substance: ISOTRETINOIN
     Indication: ACNE CYSTIC
     Dates: start: 20130906, end: 20140620
  3. OMEGA 3 [Concomitant]
     Active Substance: OMEGA-3 FATTY ACIDS
  4. BUPROPION. [Concomitant]
     Active Substance: BUPROPION
  5. VITAMIN D [Concomitant]
     Active Substance: CHOLECALCIFEROL

REACTIONS (5)
  - Ejaculation disorder [None]
  - Genital hypoaesthesia [None]
  - Orgasm abnormal [None]
  - Libido decreased [None]
  - Depression [None]

NARRATIVE: CASE EVENT DATE: 20140815
